FAERS Safety Report 20454238 (Version 2)
Quarter: 2022Q1

REPORT INFORMATION
  Report Type: Report from Study
  Country: JP (occurrence: JP)
  Receive Date: 20220210
  Receipt Date: 20220221
  Transmission Date: 20220423
  Serious: Yes (Hospitalization, Other)
  Sender: FDA-Public Use
  Company Number: JP-CELLTRION INC.-2021JP003681

PATIENT

DRUGS (8)
  1. INFLIXIMAB-DYYB [Suspect]
     Active Substance: INFLIXIMAB-DYYB
     Indication: Crohn^s disease
     Dosage: 590 MG (WEIGHT: 59 KG)
     Route: 041
     Dates: start: 20181217, end: 20181217
  2. INFLIXIMAB-DYYB [Suspect]
     Active Substance: INFLIXIMAB-DYYB
     Dosage: 600 MG (WEIGHT: 60 KG)
     Route: 041
     Dates: start: 20190220, end: 20190220
  3. INFLIXIMAB-DYYB [Suspect]
     Active Substance: INFLIXIMAB-DYYB
     Dosage: 600 MG (WEIGHT: 61 KG)
     Route: 041
     Dates: start: 20190422, end: 20190422
  4. INFLIXIMAB-DYYB [Suspect]
     Active Substance: INFLIXIMAB-DYYB
     Dosage: 600 MG (WEIGHT: 60 KG)
     Route: 041
     Dates: start: 20190620, end: 20190620
  5. INFLIXIMAB-DYYB [Suspect]
     Active Substance: INFLIXIMAB-DYYB
     Dosage: 660 MG (WEIGHT: 66 KG)
     Route: 041
     Dates: start: 20191209, end: 20191209
  6. INFLIXIMAB-DYYB [Suspect]
     Active Substance: INFLIXIMAB-DYYB
     Dosage: 720 MG (WEIGHT: 72 KG)
     Route: 041
     Dates: start: 20201207, end: 20201207
  7. MESALAMINE [Concomitant]
     Active Substance: MESALAMINE
     Dosage: 2000 MILLIGRAM/DAY
     Route: 048
  8. AZATHIOPRINE [Concomitant]
     Active Substance: AZATHIOPRINE
     Dosage: 50 MILLIGRAM/DAY
     Route: 048
     Dates: start: 20170511

REACTIONS (6)
  - Interstitial lung disease [Recovering/Resolving]
  - Seasonal allergy [Unknown]
  - Chronic gastritis [Not Recovered/Not Resolved]
  - Rash [Recovered/Resolved]
  - Off label use [Unknown]
  - Off label use [Unknown]

NARRATIVE: CASE EVENT DATE: 20190311
